FAERS Safety Report 19656705 (Version 1)
Quarter: 2021Q3

REPORT INFORMATION
  Report Type: Spontaneous
  Country: US (occurrence: US)
  Receive Date: 20210803
  Receipt Date: 20210803
  Transmission Date: 20211014
  Serious: No
  Sender: FDA-Public Use
  Company Number: None

PATIENT
  Age: 59 Year
  Sex: Female

DRUGS (1)
  1. AMBRISENTAN 10MG TABLETS 30/BO: 10MG [Suspect]
     Active Substance: AMBRISENTAN
     Indication: HERITABLE PULMONARY ARTERIAL HYPERTENSION
     Route: 048
     Dates: start: 20120430

REACTIONS (6)
  - Dyspnoea [None]
  - Anxiety [None]
  - Product dose omission issue [None]
  - Chest pain [None]
  - Nausea [None]
  - Product availability issue [None]

NARRATIVE: CASE EVENT DATE: 20210711
